FAERS Safety Report 9317273 (Version 1)
Quarter: 2013Q2

REPORT INFORMATION
  Report Type: Spontaneous
  Country: US (occurrence: US)
  Receive Date: 20130530
  Receipt Date: 20130530
  Transmission Date: 20140414
  Serious: No
  Sender: FDA-Public Use
  Company Number: US-NOVEN-12US004809

PATIENT
  Age: 3 Year
  Sex: Female

DRUGS (2)
  1. DAYTRANA [Suspect]
     Indication: AUTISM
     Dosage: 10 MG, QD
     Route: 062
     Dates: start: 201206
  2. DAYTRANA [Suspect]
     Indication: CRANIOCEREBRAL INJURY

REACTIONS (5)
  - Off label use [Not Recovered/Not Resolved]
  - Wrong technique in drug usage process [Not Recovered/Not Resolved]
  - Drug administration error [Not Recovered/Not Resolved]
  - Product quality issue [Not Recovered/Not Resolved]
  - No adverse event [None]
